FAERS Safety Report 6978839-8 (Version None)
Quarter: 2010Q3

REPORT INFORMATION
  Report Type: 
  Country: None (occurrence: None)
  Receive Date: 20100913
  Receipt Date: 20100901
  Transmission Date: 20110219
  Serious: Yes (Other)
  Sender: FDA-Public Use
  Company Number: US-PFIZER INC-2009274105

PATIENT
  Age: 63 Year
  Sex: Female
  Weight: 67.574 kg

DRUGS (8)
  1. CHANTIX [Interacting]
     Indication: SMOKING CESSATION THERAPY
     Dosage: 1 MG, 2X/DAY
     Route: 048
     Dates: start: 20090901
  2. CHANTIX [Interacting]
     Dosage: 0.5 MG, 2X/DAY
     Route: 048
     Dates: start: 20100804, end: 20100808
  3. ZANAFLEX [Suspect]
     Indication: MUSCLE SPASMS
     Dosage: 8 MG, UNK
     Route: 048
     Dates: start: 20100808
  4. PLAVIX [Concomitant]
     Indication: CEREBROVASCULAR ACCIDENT
     Dosage: 75 MG, 1X/DAY
     Route: 048
  5. LOTREL [Concomitant]
     Indication: HYPERTENSION
     Dosage: 5MG/20MG DAILY
     Route: 048
  6. SIMVASTATIN [Concomitant]
     Indication: BLOOD CHOLESTEROL INCREASED
     Dosage: 40 MG, 1X/DAY
  7. ALDOMET [Concomitant]
     Indication: HYPERTENSION
     Dosage: 250 MG, 2X/DAY
     Route: 048
  8. NEBIVOLOL [Concomitant]
     Indication: HYPERTENSION
     Dosage: 20 MG, 1X/DAY
     Route: 048

REACTIONS (1)
  - MUSCLE SPASMS [None]
